FAERS Safety Report 10370422 (Version 1)
Quarter: 2014Q1

REPORT INFORMATION
  Report Type: Spontaneous
  Country: US (occurrence: None)
  Receive Date: 20140306
  Receipt Date: 20140306
  Transmission Date: 20141002
  Serious: Yes (Other)
  Sender: FDA-Public Use
  Company Number: 163-21880-13084231

PATIENT
  Age: 72 Year
  Sex: Male

DRUGS (11)
  1. REVLIMID [Suspect]
     Indication: PLASMA CELL MYELOMA
     Dosage: 25 MG, 21 IN 28 D, PO
     Route: 048
     Dates: start: 20121207
  2. HYDROMORPHONE [Concomitant]
  3. LIPITOR [Concomitant]
  4. CLOPIDOGREL [Concomitant]
  5. CYCLOBENZAPRINE [Concomitant]
  6. DULOXETINE [Concomitant]
  7. DEXAMETHASONE [Concomitant]
  8. ESOMEPRAZOLE [Concomitant]
  9. NOVOLOG [Concomitant]
  10. PREGABALIN [Concomitant]
  11. QUINAPRIL [Concomitant]

REACTIONS (1)
  - Urticaria [None]
